FAERS Safety Report 20103096 (Version 2)
Quarter: 2022Q1

REPORT INFORMATION
  Report Type: Spontaneous
  Country: US (occurrence: US)
  Receive Date: 20211123
  Receipt Date: 20220225
  Transmission Date: 20220424
  Serious: No
  Sender: FDA-Public Use
  Company Number: US-REDHILL BIOPHARMA-2021RDH00181

PATIENT
  Sex: Female

DRUGS (2)
  1. TALICIA [Suspect]
     Active Substance: AMOXICILLIN\OMEPRAZOLE MAGNESIUM\RIFABUTIN
     Indication: Abdominal pain upper
     Dosage: UNK
     Dates: start: 20211017, end: 20211030
  2. TALICIA [Suspect]
     Active Substance: AMOXICILLIN\OMEPRAZOLE MAGNESIUM\RIFABUTIN
     Indication: Off label use

REACTIONS (5)
  - Tongue discomfort [Recovered/Resolved]
  - Chromaturia [Recovering/Resolving]
  - Vulvovaginal pruritus [Recovering/Resolving]
  - Drug ineffective for unapproved indication [Unknown]
  - Off label use [Unknown]

NARRATIVE: CASE EVENT DATE: 20211001
